FAERS Safety Report 23866928 (Version 1)
Quarter: 2024Q2

REPORT INFORMATION
  Report Type: Spontaneous
  Country: CL (occurrence: CL)
  Receive Date: 20240517
  Receipt Date: 20240517
  Transmission Date: 20240716
  Serious: Yes (Life-Threatening, Hospitalization, Other)
  Sender: FDA-Public Use
  Company Number: CL-MLMSERVICE-20240502-PI047198-00217-2

PATIENT
  Age: 61 Year
  Sex: Female

DRUGS (1)
  1. METFORMIN [Suspect]
     Active Substance: METFORMIN HYDROCHLORIDE
     Indication: Type 2 diabetes mellitus
     Route: 065

REACTIONS (7)
  - Renal abscess [Recovered/Resolved]
  - Altered state of consciousness [Unknown]
  - Vasoplegia syndrome [Unknown]
  - Acute kidney injury [Not Recovered/Not Resolved]
  - Shock [Unknown]
  - Chronic kidney disease [Not Recovered/Not Resolved]
  - Lactic acidosis [Recovering/Resolving]
